FAERS Safety Report 7477860-3 (Version None)
Quarter: 2011Q2

REPORT INFORMATION
  Report Type: 
  Country: None (occurrence: None)
  Receive Date: 20110513
  Receipt Date: 20110404
  Transmission Date: 20111010
  Serious: Yes (Hospitalization, Other)
  Sender: FDA-Public Use
  Company Number: US-BAYER-201025554NA

PATIENT
  Age: 31 Year
  Sex: Female
  Weight: 77 kg

DRUGS (5)
  1. YAZ [Suspect]
     Indication: PREMENSTRUAL SYNDROME
  2. YAZ [Suspect]
     Indication: CONTRACEPTION
     Dosage: UNK
     Route: 048
     Dates: start: 20060101, end: 20080801
  3. SEASONIQUE [Concomitant]
     Dosage: UNK
     Dates: start: 20080601
  4. CELXA [Concomitant]
     Dosage: UNK
     Dates: start: 20080101
  5. CIPRO [Concomitant]
     Dosage: UNK

REACTIONS (6)
  - GALLBLADDER INJURY [None]
  - CHOLECYSTITIS CHRONIC [None]
  - DIARRHOEA [None]
  - ABDOMINAL PAIN UPPER [None]
  - PAIN [None]
  - DYSPEPSIA [None]
